FAERS Safety Report 8764992 (Version 2)
Quarter: 2012Q4

REPORT INFORMATION
  Report Type: Report from Study
  Country: BE (occurrence: BE)
  Receive Date: 20120903
  Receipt Date: 20121121
  Transmission Date: 20130627
  Serious: Yes (Death, Hospitalization)
  Sender: FDA-Public Use
  Company Number: BE-MSD-2012SP012381

PATIENT
  Age: 49 Year
  Sex: Male
  Weight: 83 kg

DRUGS (12)
  1. TEMOZOLOMIDE [Suspect]
     Indication: GLIOMA
     Dosage: UNK
     Dates: start: 20111208, end: 20120123
  2. TEMOZOLOMIDE [Suspect]
     Dosage: UNK
     Dates: start: 20120227, end: 20120501
  3. TEMOZOLOMIDE [Suspect]
     Dosage: UNK
     Dates: end: 20120627
  4. BEBETINA [Concomitant]
     Indication: OSTEOMYELITIS
     Dosage: UPDATE (28JUN2012): INDICATION - HEADACHE, FEVER
     Route: 042
     Dates: start: 20120609, end: 20120612
  5. DAFALGAN [Concomitant]
     Indication: HEADACHE
     Dosage: 1 g, prn
     Route: 048
     Dates: start: 20120516
  6. DAFALGAN [Concomitant]
     Dosage: 1 g, prn
     Route: 048
     Dates: start: 20120612, end: 20120618
  7. CONTRAMAL [Concomitant]
     Indication: OSTEOMYELITIS
     Dosage: UPDATE (28JUN2012): INDICATION - HEADACHE
     Route: 042
     Dates: start: 20120609, end: 20120610
  8. LITICAN [Concomitant]
     Indication: NAUSEA
     Dosage: UPDATE (13JUN2012): OTHER INDICATION: VOMITING
     Route: 042
     Dates: start: 20120609, end: 20120613
  9. VANCOMYCIN HYDROCHLORIDE [Concomitant]
     Indication: OSTEOMYELITIS
     Dosage: UPDATE (28JUN2012)
     Route: 042
     Dates: start: 20120609, end: 20120612
  10. CLEXANE (ENOXAPARIN SODIUM) [Concomitant]
     Indication: PROPHYLAXIS
     Dosage: UPDATE (28JUN2012)
     Route: 058
     Dates: start: 20120609
  11. FLOXAPEN [Concomitant]
     Indication: OSTEOMYELITIS
     Dosage: UPDATE (28JUN2012): FREQUENCY-6 X 1 D
     Route: 042
     Dates: start: 20120612, end: 20120622
  12. IBUPROFEN [Concomitant]
     Indication: HEADACHE
     Dosage: UPDATE (28JUN2012)
     Route: 048
     Dates: start: 20120612, end: 20120630

REACTIONS (4)
  - Neoplasm progression [Fatal]
  - Rash [Not Recovered/Not Resolved]
  - Hydrocephalus [Not Recovered/Not Resolved]
  - Post procedural infection [Recovered/Resolved]
